FAERS Safety Report 25422398 (Version 1)
Quarter: 2025Q2

REPORT INFORMATION
  Report Type: Report from Study
  Country: SE (occurrence: SE)
  Receive Date: 20250611
  Receipt Date: 20250611
  Transmission Date: 20250716
  Serious: Yes (Hospitalization, Other)
  Sender: MYLAN
  Company Number: SE-MYLANLABS-2025M1048305

PATIENT
  Age: 42 Year
  Sex: Female

DRUGS (2)
  1. PREDNISONE [Suspect]
     Active Substance: PREDNISONE
     Indication: Colitis ulcerative
  2. BETAMETHASONE [Suspect]
     Active Substance: BETAMETHASONE
     Indication: Colitis ulcerative
     Dosage: 4 MILLIGRAM, BID

REACTIONS (2)
  - Drug ineffective [Unknown]
  - Insulin resistance [Recovered/Resolved]
